FAERS Safety Report 8118148-7 (Version None)
Quarter: 2012Q1

REPORT INFORMATION
  Report Type: 
  Country: None (occurrence: None)
  Receive Date: 20120202
  Receipt Date: 20120123
  Transmission Date: 20120608
  Serious: Yes (Life-Threatening, Hospitalization, Other)
  Sender: FDA-Public Use
  Company Number: 11-850

PATIENT
  Age: 78 Year
  Sex: Male

DRUGS (4)
  1. SPIRONOLACTONE [Suspect]
     Indication: CARDIAC FAILURE
     Dosage: 50MG / ONCE / ORAL
     Route: 048
     Dates: start: 20050101, end: 20111030
  2. IBUPROFEN / 400MG / UNK [Suspect]
     Indication: BACK PAIN
     Dosage: 400MG / ONCE / ORAL
     Route: 048
     Dates: start: 20110801, end: 20111030
  3. FUROSEMIDE [Concomitant]
  4. INDOMETHACIN [Concomitant]

REACTIONS (1)
  - RENAL FAILURE ACUTE [None]
